FAERS Safety Report 21994508 (Version 3)
Quarter: 2023Q2

REPORT INFORMATION
  Report Type: Report from Study
  Country: CA (occurrence: CA)
  Receive Date: 20230215
  Receipt Date: 20230413
  Transmission Date: 20230722
  Serious: Yes (Other)
  Sender: FDA-Public Use
  Company Number: CA-GLAXOSMITHKLINE-CA2023AMR005282

PATIENT

DRUGS (2)
  1. MEPOLIZUMAB [Suspect]
     Active Substance: MEPOLIZUMAB
     Indication: Asthma
     Dosage: 100 MG, Z (EBERY 4 WEEKS)
     Route: 058
     Dates: start: 20220422
  2. MEPOLIZUMAB [Suspect]
     Active Substance: MEPOLIZUMAB
     Indication: Asthma
     Dosage: 100 MG, Z
     Route: 058
     Dates: start: 20220422

REACTIONS (5)
  - Cataract [Unknown]
  - Pulmonary fibrosis [Unknown]
  - Rash [Unknown]
  - Blood pressure systolic increased [Unknown]
  - Endoscopy upper gastrointestinal tract [Unknown]
